FAERS Safety Report 7960350-9 (Version None)
Quarter: 2011Q4

REPORT INFORMATION
  Report Type: 
  Country: None (occurrence: None)
  Receive Date: 20111206
  Receipt Date: 20111125
  Transmission Date: 20120403
  Serious: Yes (Death, Other)
  Sender: FDA-Public Use
  Company Number: IT-CELGENEUS-083-21880-11092647

PATIENT
  Age: 71 Year
  Sex: Female

DRUGS (3)
  1. DEXAMETHASONE [Suspect]
     Route: 048
     Dates: start: 20080626, end: 20081030
  2. CYCLOPHOSPHAMIDE [Suspect]
     Route: 048
     Dates: start: 20080626, end: 20080911
  3. REVLIMID [Suspect]
     Route: 048
     Dates: start: 20080626, end: 20081103

REACTIONS (2)
  - AMYLOIDOSIS [None]
  - CARDIAC AMYLOIDOSIS [None]
